FAERS Safety Report 19904251 (Version 1)
Quarter: 2021Q4

REPORT INFORMATION
  Report Type: Spontaneous
  Country: US (occurrence: US)
  Receive Date: 20211001
  Receipt Date: 20211001
  Transmission Date: 20220303
  Serious: Yes (Other)
  Sender: FDA-Public Use
  Company Number: US-MYLANLABS-2021M1067270

PATIENT
  Age: 44 Year
  Sex: Male

DRUGS (1)
  1. VALPROIC ACID [Suspect]
     Active Substance: VALPROIC ACID
     Indication: Epilepsy
     Dosage: UNK
     Route: 065

REACTIONS (6)
  - Factor XIII deficiency [Unknown]
  - Haemorrhage intracranial [Unknown]
  - Coagulopathy [Unknown]
  - Haematoma [Unknown]
  - Extradural haematoma [Unknown]
  - Intra-abdominal haematoma [Unknown]
